FAERS Safety Report 25877419 (Version 2)
Quarter: 2025Q4

REPORT INFORMATION
  Report Type: Spontaneous
  Country: US (occurrence: US)
  Receive Date: 20251003
  Receipt Date: 20251107
  Transmission Date: 20260117
  Serious: No
  Sender: MYLAN
  Company Number: US-MYLANLABS-2025M1080038

PATIENT
  Age: 75 Year
  Sex: Female
  Weight: 50.8 kg

DRUGS (16)
  1. WIXELA INHUB [Suspect]
     Active Substance: FLUTICASONE PROPIONATE\SALMETEROL XINAFOATE
     Indication: Product used for unknown indication
     Dosage: 100/50 MICROGRAM, BID (TWICE DAILY)
     Dates: start: 202509, end: 20250916
  2. WIXELA INHUB [Suspect]
     Active Substance: FLUTICASONE PROPIONATE\SALMETEROL XINAFOATE
     Dosage: 100/50 MICROGRAM, BID (TWICE DAILY)
     Route: 055
     Dates: start: 202509, end: 20250916
  3. WIXELA INHUB [Suspect]
     Active Substance: FLUTICASONE PROPIONATE\SALMETEROL XINAFOATE
     Dosage: 100/50 MICROGRAM, BID (TWICE DAILY)
     Route: 055
     Dates: start: 202509, end: 20250916
  4. WIXELA INHUB [Suspect]
     Active Substance: FLUTICASONE PROPIONATE\SALMETEROL XINAFOATE
     Dosage: 100/50 MICROGRAM, BID (TWICE DAILY)
     Dates: start: 202509, end: 20250916
  5. Gesterol [Concomitant]
     Dosage: 5 MILLIGRAM, QD (ONCE DAILY)
  6. Gesterol [Concomitant]
     Dosage: 5 MILLIGRAM, QD (ONCE DAILY)
     Route: 048
  7. Gesterol [Concomitant]
     Dosage: 5 MILLIGRAM, QD (ONCE DAILY)
     Route: 048
  8. Gesterol [Concomitant]
     Dosage: 5 MILLIGRAM, QD (ONCE DAILY)
  9. LIPITOR [Concomitant]
     Active Substance: ATORVASTATIN CALCIUM
     Indication: Hypertension
     Dosage: 10 MILLIGRAM, 4XW (4X A WEEK)
  10. LIPITOR [Concomitant]
     Active Substance: ATORVASTATIN CALCIUM
     Dosage: 10 MILLIGRAM, 4XW (4X A WEEK)
     Route: 048
  11. LIPITOR [Concomitant]
     Active Substance: ATORVASTATIN CALCIUM
     Dosage: 10 MILLIGRAM, 4XW (4X A WEEK)
     Route: 048
  12. LIPITOR [Concomitant]
     Active Substance: ATORVASTATIN CALCIUM
     Dosage: 10 MILLIGRAM, 4XW (4X A WEEK)
  13. RISEDRONATE SODIUM [Concomitant]
     Active Substance: RISEDRONATE SODIUM
     Indication: Osteoporosis
     Dosage: 35 MILLIGRAM, QW (ONCE WEEKLY)
  14. RISEDRONATE SODIUM [Concomitant]
     Active Substance: RISEDRONATE SODIUM
     Dosage: 35 MILLIGRAM, QW (ONCE WEEKLY)
     Route: 048
  15. RISEDRONATE SODIUM [Concomitant]
     Active Substance: RISEDRONATE SODIUM
     Dosage: 35 MILLIGRAM, QW (ONCE WEEKLY)
     Route: 048
  16. RISEDRONATE SODIUM [Concomitant]
     Active Substance: RISEDRONATE SODIUM
     Dosage: 35 MILLIGRAM, QW (ONCE WEEKLY)

REACTIONS (2)
  - Cough [Unknown]
  - Product contamination physical [Unknown]

NARRATIVE: CASE EVENT DATE: 20250901
